FAERS Safety Report 5170757-3 (Version None)
Quarter: 2006Q4

REPORT INFORMATION
  Report Type: 
  Country: None (occurrence: None)
  Receive Date: 20060919
  Receipt Date: 20060718
  Transmission Date: 20070319
  Serious: No
  Sender: FDA-Public Use
  Company Number: 2006US001623

PATIENT
  Age: 67 Year
  Sex: Male

DRUGS (6)
  1. VESICARE [Suspect]
     Indication: HYPERTONIC BLADDER
     Dosage: 5 MG, UID/QD, ORAL
     Route: 048
     Dates: start: 20060715
  2. LEXAPRO [Concomitant]
  3. NAPROXEN SODIUM [Concomitant]
  4. VITAMINE E (HERBAL OIL NOS) [Concomitant]
  5. GAS X (SIMETICONE) [Concomitant]
  6. STOOL SOFTNER (DOCUSATE SODIUM) [Concomitant]

REACTIONS (1)
  - DRUG INEFFECTIVE [None]
